FAERS Safety Report 11721959 (Version 1)
Quarter: 2015Q4

REPORT INFORMATION
  Report Type: Spontaneous
  Country: US (occurrence: None)
  Receive Date: 20151110
  Receipt Date: 20151110
  Transmission Date: 20160304
  Serious: Yes (Hospitalization)
  Sender: FDA-Public Use
  Company Number: None

PATIENT
  Age: 65 Year
  Sex: Male
  Weight: 83.4 kg

DRUGS (3)
  1. TOPIRAMATE. [Suspect]
     Active Substance: TOPIRAMATE
     Indication: BIPOLAR DISORDER
     Route: 048
     Dates: start: 20150917, end: 20151002
  2. TOPIRAMATE. [Suspect]
     Active Substance: TOPIRAMATE
     Indication: MANIA
     Route: 048
     Dates: start: 20150917, end: 20151002
  3. TOPIRAMATE. [Suspect]
     Active Substance: TOPIRAMATE
     Indication: MIGRAINE
     Route: 048
     Dates: start: 20150917, end: 20151002

REACTIONS (2)
  - Ammonia increased [None]
  - Encephalopathy [None]

NARRATIVE: CASE EVENT DATE: 20151002
